FAERS Safety Report 9564461 (Version 1)
Quarter: 2013Q3

REPORT INFORMATION
  Report Type: Spontaneous
  Country: US (occurrence: US)
  Receive Date: 20130930
  Receipt Date: 20130930
  Transmission Date: 20140515
  Serious: Yes (Death)
  Sender: FDA-Public Use
  Company Number: US-JNJFOC-20130915287

PATIENT
  Sex: Female

DRUGS (2)
  1. CONCENTRATED TYLENOL INFANTS^ DROPS CHERRY FLAVOR [Suspect]
     Route: 048
  2. CONCENTRATED TYLENOL INFANTS^ DROPS CHERRY FLAVOR [Suspect]
     Indication: PRODUCT USED FOR UNKNOWN INDICATION
     Route: 048

REACTIONS (1)
  - Incorrect dose administered [Fatal]
